FAERS Safety Report 9212890 (Version 5)
Quarter: 2013Q3

REPORT INFORMATION
  Report Type: Spontaneous
  Country: US (occurrence: US)
  Receive Date: 20130405
  Receipt Date: 20130709
  Transmission Date: 20140515
  Serious: No
  Sender: FDA-Public Use
  Company Number: US-009507513-1304USA000554

PATIENT
  Age: 54 Year
  Sex: Male
  Weight: 73.16 kg

DRUGS (8)
  1. VICTRELIS [Suspect]
     Indication: HEPATITIS C
     Dosage: 800 MG, TID (EVERY 7 TO 9 HOURS WITH FOOD)
     Route: 048
     Dates: start: 20130322
  2. PEGASYS [Suspect]
     Dosage: UNK, 90 UNITS UNSPECIFIED
     Dates: start: 20130225
  3. PEGASYS [Suspect]
     Dosage: 90 MICROGRAM, UNK
  4. RIBAPAK [Suspect]
     Dosage: 1200 MG QD
  5. RIBAPAK [Suspect]
     Dosage: 800 MG, QD
     Dates: start: 20130225
  6. LEXAPRO [Concomitant]
     Dosage: UNK
  7. NEXIUM [Concomitant]
     Dosage: 40 MG DAILY
  8. NEUPOGEN [Concomitant]
     Dosage: UNK, QW

REACTIONS (11)
  - Scratch [Unknown]
  - Abdominal pain upper [Unknown]
  - Depression [Unknown]
  - Influenza like illness [Unknown]
  - Anxiety [Unknown]
  - Headache [Unknown]
  - Fatigue [Unknown]
  - Rash macular [Unknown]
  - Dysgeusia [Unknown]
  - Platelet count decreased [Unknown]
  - Product quality issue [Unknown]
